FAERS Safety Report 5029258-5 (Version None)
Quarter: 2006Q2

REPORT INFORMATION
  Report Type: 
  Country: None (occurrence: None)
  Receive Date: 20060619
  Receipt Date: 20060607
  Transmission Date: 20061013
  Serious: Yes (Other)
  Sender: FDA-Public Use
  Company Number: US-BRISTOL-MYERS SQUIBB COMPANY-13404330

PATIENT
  Age: 90 Year
  Sex: Female

DRUGS (2)
  1. KENALOG [Suspect]
     Indication: MACULAR DEGENERATION
     Route: 031
  2. UNSPECIFIED [Concomitant]

REACTIONS (2)
  - BLINDNESS [None]
  - INFLAMMATION [None]
